FAERS Safety Report 8003064-1 (Version None)
Quarter: 2011Q4

REPORT INFORMATION
  Report Type: 
  Country: None (occurrence: None)
  Receive Date: 20111222
  Receipt Date: 20111214
  Transmission Date: 20120403
  Serious: Yes (Other)
  Sender: FDA-Public Use
  Company Number: NL-UCBSA-047731

PATIENT
  Age: 39 Year
  Sex: Male

DRUGS (12)
  1. CIMZIA [Suspect]
     Route: 058
     Dates: start: 20110101, end: 20110101
  2. FLUTICASON [Concomitant]
     Indication: RHEUMATOID ARTHRITIS
     Route: 045
  3. ACETAMINOPHEN [Concomitant]
     Indication: RHEUMATOID ARTHRITIS
     Dosage: INTAKE PER DAY 2-4, 1000 MG- 2000 MG
     Route: 048
  4. FLUOXETINE [Concomitant]
     Route: 048
  5. CIMZIA [Suspect]
     Indication: RHEUMATOID ARTHRITIS
     Route: 058
     Dates: start: 20110101
  6. NEXIUM [Concomitant]
     Indication: RHEUMATOID ARTHRITIS
     Route: 048
  7. PLAQUENIL [Concomitant]
     Indication: RHEUMATOID ARTHRITIS
     Route: 048
  8. DICLOFENAC SODIUM [Concomitant]
     Indication: RHEUMATOID ARTHRITIS
     Route: 048
  9. COZAAR [Concomitant]
     Indication: BLOOD PRESSURE
     Route: 048
  10. DIAZEPAM [Concomitant]
     Indication: RHEUMATOID ARTHRITIS
     Dosage: 1-2 PER WEEK
     Route: 048
  11. ENBREL [Concomitant]
     Dosage: WITH FREQUENCY OF 50 MG PER 5 DAYS IN THE END
     Dates: start: 20051201, end: 20110101
  12. FLUOXETINE [Concomitant]
     Indication: RHEUMATOID ARTHRITIS
     Route: 048

REACTIONS (10)
  - PSORIASIS [None]
  - VERTIGO [None]
  - HYPOAESTHESIA [None]
  - COUGH [None]
  - NAUSEA [None]
  - FATIGUE [None]
  - HEADACHE [None]
  - VISUAL IMPAIRMENT [None]
  - MUSCULOSKELETAL PAIN [None]
  - OEDEMA PERIPHERAL [None]
